FAERS Safety Report 4908382-9 (Version None)
Quarter: 2006Q1

REPORT INFORMATION
  Report Type: 
  Country: None (occurrence: None)
  Receive Date: 20060210
  Receipt Date: 20060202
  Transmission Date: 20060701
  Serious: Yes (Hospitalization)
  Sender: FDA-Public Use
  Company Number: SE-AVENTIS-200611058GDDC

PATIENT
  Age: 85 Year
  Sex: Female

DRUGS (11)
  1. AMARYL [Suspect]
     Indication: DIABETES MELLITUS
     Dosage: DOSE: UNK
     Route: 048
     Dates: end: 20051020
  2. CITALOPRAM HYDROBROMIDE [Suspect]
     Indication: DEPRESSION
     Dosage: DOSE: UNK
     Dates: start: 20051016, end: 20051020
  3. COZAAR [Suspect]
     Indication: HYPERTENSION
     Dosage: DOSE: UNK
     Route: 048
     Dates: end: 20051020
  4. STILNOCT [Concomitant]
     Route: 048
     Dates: start: 20051016
  5. FOLACIN [Concomitant]
     Route: 048
  6. BEHEPAN [Concomitant]
     Route: 048
  7. ZYLORIC [Concomitant]
     Route: 048
  8. LASIX [Concomitant]
     Route: 048
  9. ZANTAC [Concomitant]
     Route: 048
  10. TROMBYL [Concomitant]
     Route: 048
  11. PRAVACHOL [Concomitant]
     Route: 048

REACTIONS (8)
  - BLOOD POTASSIUM DECREASED [None]
  - BLOOD SODIUM DECREASED [None]
  - FATIGUE [None]
  - HYPOKALAEMIA [None]
  - HYPONATRAEMIA [None]
  - NAUSEA [None]
  - SOMNOLENCE [None]
  - VOMITING [None]
